FAERS Safety Report 9683477 (Version 1)
Quarter: 2013Q4

REPORT INFORMATION
  Report Type: Report from Study
  Country: AU (occurrence: AU)
  Receive Date: 20131112
  Receipt Date: 20131112
  Transmission Date: 20140711
  Serious: Yes (Other)
  Sender: FDA-Public Use
  Company Number: AU-SA-2013SA112929

PATIENT
  Sex: Male

DRUGS (3)
  1. LANTUS [Suspect]
     Indication: PRODUCT USED FOR UNKNOWN INDICATION
     Route: 058
     Dates: start: 20120601
  2. COVERAM [Concomitant]
  3. METFORMIN [Concomitant]

REACTIONS (1)
  - Intraspinal abscess [Recovering/Resolving]
